FAERS Safety Report 8398780-6 (Version None)
Quarter: 2012Q2

REPORT INFORMATION
  Report Type: 
  Country: None (occurrence: None)
  Receive Date: 20120531
  Receipt Date: 20120503
  Transmission Date: 20120825
  Serious: No
  Sender: FDA-Public Use
  Company Number: US-BAYER-2012-048703

PATIENT

DRUGS (3)
  1. ALEVE (CAPLET) [Suspect]
     Indication: PAIN
     Dosage: 4 U, QD
     Route: 048
  2. VICODIN [Concomitant]
     Dosage: 6 U, UNK
  3. MUSCLE RELAXANTS [Concomitant]
     Dosage: 3 U, UNK
     Route: 048

REACTIONS (1)
  - PAIN [None]
